FAERS Safety Report 4840407-1 (Version None)
Quarter: 2005Q4

REPORT INFORMATION
  Report Type: 
  Country: None (occurrence: None)
  Receive Date: 20051024
  Receipt Date: 20050803
  Transmission Date: 20060501
  Serious: Yes (Life-Threatening)
  Sender: FDA-Public Use
  Company Number: 216401

PATIENT
  Age: 15 Year
  Sex: Female
  Weight: 63.5 kg

DRUGS (1)
  1. XOLAIR [Suspect]
     Indication: ASTHMA
     Dosage: 225 MG, Q2W
     Dates: start: 20031101

REACTIONS (2)
  - DYSPNOEA [None]
  - TONGUE OEDEMA [None]
